FAERS Safety Report 9092674 (Version 1)
Quarter: 2013Q1

REPORT INFORMATION
  Report Type: Spontaneous
  Country: US (occurrence: None)
  Receive Date: 20130213
  Receipt Date: 20130213
  Transmission Date: 20140127
  Serious: Yes (Life-Threatening)
  Sender: FDA-Public Use
  Company Number: None

PATIENT
  Age: 21 Year
  Sex: 0
  Weight: 65.77 kg

DRUGS (2)
  1. PURELAX [Suspect]
     Indication: BOWEL PREPARATION
     Dates: start: 20130117, end: 20130117
  2. PREP FOR COLON EXAM [Concomitant]

REACTIONS (5)
  - Vomiting [None]
  - Dizziness [None]
  - Convulsion [None]
  - Blood sodium decreased [None]
  - Brain oedema [None]
